FAERS Safety Report 22374141 (Version 1)
Quarter: 2023Q2

REPORT INFORMATION
  Report Type: Spontaneous
  Country: US (occurrence: US)
  Receive Date: 20230526
  Receipt Date: 20230526
  Transmission Date: 20230721
  Serious: Yes (Other)
  Sender: FDA-Public Use
  Company Number: US-FreseniusKabi-FK202307249

PATIENT
  Age: 67 Year
  Sex: Female

DRUGS (11)
  1. LEVETIRACETAM [Suspect]
     Active Substance: LEVETIRACETAM
     Indication: Seizure prophylaxis
  2. LEVETIRACETAM [Suspect]
     Active Substance: LEVETIRACETAM
  3. PHENOBARBITAL [Suspect]
     Active Substance: PHENOBARBITAL
     Indication: Seizure prophylaxis
  4. FENTANYL [Concomitant]
     Active Substance: FENTANYL
     Indication: Anaesthesia
  5. FENTANYL [Concomitant]
     Active Substance: FENTANYL
  6. LIDOCAINE [Concomitant]
     Active Substance: LIDOCAINE
     Indication: Anaesthesia
  7. LIDOCAINE [Concomitant]
     Active Substance: LIDOCAINE
  8. PROPOFOL [Concomitant]
     Active Substance: PROPOFOL
     Indication: Anaesthesia
  9. PROPOFOL [Concomitant]
     Active Substance: PROPOFOL
  10. ROCURONIUM [Concomitant]
     Active Substance: ROCURONIUM BROMIDE
     Indication: Anaesthesia
  11. ROCURONIUM [Concomitant]
     Active Substance: ROCURONIUM BROMIDE

REACTIONS (2)
  - Kounis syndrome [Recovered/Resolved]
  - Anaphylactic reaction [Recovered/Resolved]
